FAERS Safety Report 22885291 (Version 2)
Quarter: 2024Q1

REPORT INFORMATION
  Report Type: Report from Study
  Country: US (occurrence: US)
  Receive Date: 20230831
  Receipt Date: 20240213
  Transmission Date: 20240410
  Serious: Yes (Hospitalization)
  Sender: FDA-Public Use
  Company Number: US-ABBVIE-5388174

PATIENT
  Sex: Male

DRUGS (1)
  1. VENCLEXTA [Suspect]
     Active Substance: VENETOCLAX
     Indication: Myelodysplastic syndrome with excess blasts
     Dosage: FORM STRENGTH: 100 MILLIGRAM; DURATION TEXT: TAKE 2 TABLET(S) BY MOUTH EVERY DAY
     Route: 048

REACTIONS (2)
  - Chemotherapy [Unknown]
  - Off label use [Unknown]
